FAERS Safety Report 19607019 (Version 3)
Quarter: 2021Q4

REPORT INFORMATION
  Report Type: Report from Study
  Country: JP (occurrence: JP)
  Receive Date: 20210726
  Receipt Date: 20211013
  Transmission Date: 20220304
  Serious: Yes (Death)
  Sender: FDA-Public Use
  Company Number: JP-CELLTRION INC.-2021JP009783

PATIENT

DRUGS (9)
  1. INVESTIGATIONAL BIOSIMILARS [Suspect]
     Active Substance: INVESTIGATIONAL BIOSIMILARS
     Indication: HER2 positive gastric cancer
     Dosage: 335 MG, QD (EVERY ADMINISTRATION)
     Route: 041
     Dates: start: 20210215, end: 20210215
  2. INVESTIGATIONAL BIOSIMILARS [Suspect]
     Active Substance: INVESTIGATIONAL BIOSIMILARS
     Dosage: 226 MG, QD (EVERY ADMINISTRATION)
     Route: 041
     Dates: start: 20210308, end: 20210308
  3. GIMERACIL\OTERACIL\TEGAFUR [Suspect]
     Active Substance: GIMERACIL\OTERACIL\TEGAFUR
     Indication: HER2 positive gastric cancer
     Dosage: 80 MG, QD (EVERY ADMINISTRATION)
     Route: 048
     Dates: start: 20210215, end: 20210301
  4. GIMERACIL\OTERACIL\TEGAFUR [Suspect]
     Active Substance: GIMERACIL\OTERACIL\TEGAFUR
     Dosage: 80 MG, QD (EVERY ADMINISTRATION)
     Route: 048
     Dates: start: 20210308, end: 20210323
  5. CISPLATIN [Concomitant]
     Active Substance: CISPLATIN
     Indication: HER2 positive gastric cancer
     Dosage: UNK
     Dates: start: 20210308, end: 20210308
  6. PANCRELIPASE [Concomitant]
     Active Substance: PANCRELIPASE
     Indication: Post procedural diarrhoea
     Dosage: UNK
     Dates: end: 20210414
  7. SPIRONOLACTONE [Concomitant]
     Active Substance: SPIRONOLACTONE
     Indication: HER2 positive gastric cancer
     Dosage: UNK
     Dates: end: 20210414
  8. APREPITANT [Concomitant]
     Active Substance: APREPITANT
     Indication: Prophylaxis of nausea and vomiting
     Dosage: UNK
     Dates: start: 20210308, end: 20210309
  9. MYSER [Concomitant]
     Indication: Dry skin prophylaxis
     Dosage: UNK
     Dates: start: 20210222, end: 20210413

REACTIONS (8)
  - Myocardial infarction [Fatal]
  - Palmar-plantar erythrodysaesthesia syndrome [Not Recovered/Not Resolved]
  - Neutrophil count decreased [Recovered/Resolved]
  - Stomatitis [Recovered/Resolved]
  - Diarrhoea [Recovered/Resolved]
  - Lacrimation increased [Recovered/Resolved]
  - Taste disorder [Not Recovered/Not Resolved]
  - Underdose [Unknown]

NARRATIVE: CASE EVENT DATE: 20210308
